FAERS Safety Report 9583766 (Version 1)
Quarter: 2013Q4

REPORT INFORMATION
  Report Type: Spontaneous
  Country: US (occurrence: US)
  Receive Date: 20131002
  Receipt Date: 20131002
  Transmission Date: 20140711
  Serious: No
  Sender: FDA-Public Use
  Company Number: US-AMGEN-USASP2013049052

PATIENT
  Age: 36 Year
  Sex: Female

DRUGS (5)
  1. ENBREL [Suspect]
     Indication: PRODUCT USED FOR UNKNOWN INDICATION
     Dosage: 44 MUG, 3 TIMES/WK
     Route: 058
     Dates: start: 20130625
  2. ACETAMINOPHEN [Concomitant]
     Dosage: 500 MG, UNK
  3. XANAX [Concomitant]
     Dosage: 0.5 MG, UNK
  4. LYRICA [Concomitant]
     Dosage: 75 MG, UNK
  5. VICODIN [Concomitant]
     Dosage: UNK

REACTIONS (5)
  - Headache [Unknown]
  - Feeling hot [Unknown]
  - Injection site discolouration [Unknown]
  - Injection site reaction [Unknown]
  - Injection site erythema [Unknown]
